FAERS Safety Report 8185302-8 (Version None)
Quarter: 2012Q1

REPORT INFORMATION
  Report Type: 
  Country: None (occurrence: None)
  Receive Date: 20120305
  Receipt Date: 20120227
  Transmission Date: 20120608
  Serious: Yes (Death, Hospitalization)
  Sender: FDA-Public Use
  Company Number: PHHY2011JP88198

PATIENT
  Sex: Male

DRUGS (1)
  1. GLEEVEC [Suspect]
     Indication: CHRONIC MYELOID LEUKAEMIA
     Dosage: 400 MG, DAILY
     Route: 048
     Dates: start: 20040901, end: 20100506

REACTIONS (7)
  - PNEUMONIA [None]
  - PYREXIA [None]
  - MALAISE [None]
  - FATIGUE [None]
  - CYANOSIS [None]
  - DYSPNOEA [None]
  - INTERSTITIAL LUNG DISEASE [None]
